FAERS Safety Report 11416768 (Version 20)
Quarter: 2019Q2

REPORT INFORMATION
  Report Type: Report from Study
  Country: US (occurrence: US)
  Receive Date: 20150825
  Receipt Date: 20190604
  Transmission Date: 20190711
  Serious: Yes (Death, Hospitalization, Other)
  Sender: FDA-Public Use
  Company Number: US-ACTELION-A-US2015-122774

PATIENT
  Age: 76 Year
  Sex: Female

DRUGS (30)
  1. SPIRONOLACTONE. [Concomitant]
     Active Substance: SPIRONOLACTONE
  2. ZOFRAN [Concomitant]
     Active Substance: ONDANSETRON HYDROCHLORIDE
     Dosage: 4 MG, Q8HRS
  3. PANTOPRAZOLE [Concomitant]
     Active Substance: PANTOPRAZOLE
  4. SYMBICORT [Concomitant]
     Active Substance: BUDESONIDE\FORMOTEROL FUMARATE DIHYDRATE
  5. GABAPENTIN. [Concomitant]
     Active Substance: GABAPENTIN
     Dosage: 300 UNK, BID
  6. MECLIZINE [Concomitant]
     Active Substance: MECLIZINE HYDROCHLORIDE
     Dosage: 25
  7. REVATIO [Concomitant]
     Active Substance: SILDENAFIL CITRATE
     Dosage: 20 MG, TID
  8. ENBREL [Concomitant]
     Active Substance: ETANERCEPT
  9. FUROSEMIDE. [Concomitant]
     Active Substance: FUROSEMIDE
     Dosage: 20 MG, QD
  10. TRAMADOL. [Concomitant]
     Active Substance: TRAMADOL
     Dosage: 50 MG, Q6H, PRN
  11. OPSUMIT [Suspect]
     Active Substance: MACITENTAN
     Dosage: 10 MG, QD
     Route: 048
     Dates: start: 20180120, end: 20190302
  12. ATROVENT [Concomitant]
     Active Substance: IPRATROPIUM BROMIDE
     Dosage: 2 PUFFS, Q 6 HRS., PRN
  13. CALCIUM +D [Concomitant]
     Active Substance: CALCIUM\VITAMIN D
     Dosage: 600 MG + 2 UNITS
  14. OPSUMIT [Suspect]
     Active Substance: MACITENTAN
     Dosage: 10 MG
     Route: 048
  15. LISINOPRIL. [Concomitant]
     Active Substance: LISINOPRIL
  16. PLAQUENIL [Concomitant]
     Active Substance: HYDROXYCHLOROQUINE SULFATE
     Dosage: 200 AM, 100 PM
  17. SINGULAIR [Concomitant]
     Active Substance: MONTELUKAST SODIUM
     Dosage: 10 MG, QD
  18. SCOPOLAMINE PCH [Concomitant]
     Dosage: Q72 HRS
  19. SPIRIVA [Concomitant]
     Active Substance: TIOTROPIUM BROMIDE MONOHYDRATE
  20. ASPIRIN. [Concomitant]
     Active Substance: ASPIRIN
     Dosage: 81 MG, QD
  21. PROTONIX [Concomitant]
     Active Substance: PANTOPRAZOLE SODIUM
     Dosage: 10 MEQ, QOD
  22. OPSUMIT [Suspect]
     Active Substance: MACITENTAN
     Indication: PULMONARY ARTERIAL HYPERTENSION
     Dosage: 10 MG, QD
     Route: 048
     Dates: start: 20150301, end: 201903
  23. MONTELUKAST [Concomitant]
     Active Substance: MONTELUKAST SODIUM
  24. FERROUS SULFATE. [Concomitant]
     Active Substance: FERROUS SULFATE
     Dosage: 324 UNK, QD
  25. DUONEB [Concomitant]
     Active Substance: ALBUTEROL SULFATE\IPRATROPIUM BROMIDE
     Dosage: Q6 HRS, PRN
  26. SENNA [Concomitant]
     Active Substance: SENNA LEAF\SENNOSIDES\SENNOSIDES A AND B
     Dosage: 8 - 6 MG QD
  27. HYDROXYCHLOROQUINE [Concomitant]
     Active Substance: HYDROXYCHLOROQUINE
  28. PROAIR HFA [Concomitant]
     Active Substance: ALBUTEROL SULFATE
  29. ADVAIR HFA [Concomitant]
     Active Substance: FLUTICASONE PROPIONATE\SALMETEROL XINAFOATE
     Dosage: 500 - 5 MCG, ONE INHALATION DAILY
  30. CARDIZEM [Concomitant]
     Active Substance: DILTIAZEM HYDROCHLORIDE
     Dosage: 120 MG, BID

REACTIONS (36)
  - Lower respiratory tract infection [Recovered/Resolved]
  - Hypoxia [Unknown]
  - H1N1 influenza [Unknown]
  - Pneumothorax [Recovered/Resolved]
  - Incoherent [Unknown]
  - Pain in extremity [Not Recovered/Not Resolved]
  - Myalgia [Not Recovered/Not Resolved]
  - Oxygen saturation decreased [Recovering/Resolving]
  - Cough [Fatal]
  - Hypomagnesaemia [Recovered/Resolved]
  - Chronic obstructive pulmonary disease [Not Recovered/Not Resolved]
  - Productive cough [Unknown]
  - Wound [Unknown]
  - Pleurodesis [Unknown]
  - Left ventricular failure [Recovered/Resolved with Sequelae]
  - Oedema [Unknown]
  - Dyspnoea [Fatal]
  - Sputum discoloured [Unknown]
  - Pleural effusion [Recovered/Resolved]
  - Pneumonia [Recovered/Resolved with Sequelae]
  - H2N2 influenza [Unknown]
  - Pulmonary hypertension [Unknown]
  - Non-cardiac chest pain [Not Recovered/Not Resolved]
  - Product dose omission [Unknown]
  - Acute respiratory failure [Fatal]
  - Aspartate aminotransferase increased [Unknown]
  - Lethargy [Not Recovered/Not Resolved]
  - Obstructive airways disorder [Unknown]
  - Pyrexia [Unknown]
  - Hypokalaemia [Recovered/Resolved]
  - Pulmonary fibrosis [Recovered/Resolved with Sequelae]
  - Hypotension [Not Recovered/Not Resolved]
  - Loss of consciousness [Not Recovered/Not Resolved]
  - Hypertension [Unknown]
  - Condition aggravated [Recovered/Resolved with Sequelae]
  - Hospitalisation [Unknown]

NARRATIVE: CASE EVENT DATE: 20150905
